FAERS Safety Report 6795843-3 (Version None)
Quarter: 2010Q2

REPORT INFORMATION
  Report Type: 
  Country: None (occurrence: None)
  Receive Date: 20100625
  Receipt Date: 20100617
  Transmission Date: 20101027
  Serious: Yes (Other)
  Sender: FDA-Public Use
  Company Number: A0865751A

PATIENT
  Age: 79 Year
  Sex: Female

DRUGS (6)
  1. VERAMYST [Suspect]
     Dosage: 2PUFF PER DAY
     Route: 045
     Dates: start: 20090101
  2. NEXIUM [Concomitant]
  3. ZETIA [Concomitant]
  4. TOPAMAX [Concomitant]
  5. ADVAIR DISKUS 100/50 [Concomitant]
  6. LOVAZA [Concomitant]

REACTIONS (2)
  - AGEUSIA [None]
  - ANOSMIA [None]
